FAERS Safety Report 25654018 (Version 2)
Quarter: 2025Q3

REPORT INFORMATION
  Report Type: Report from Study
  Country: GB (occurrence: GB)
  Receive Date: 20250807
  Receipt Date: 20250826
  Transmission Date: 20251020
  Serious: Yes (Hospitalization, Other)
  Sender: BAYER HEALTHCARE PHARMACEUTICALS INC.
  Company Number: GB-BAYER-2025A087452

PATIENT
  Age: 82 Year
  Sex: Male

DRUGS (2)
  1. NUBEQA [Suspect]
     Active Substance: DAROLUTAMIDE
     Indication: Hormone-refractory prostate cancer
     Dosage: 600 MG, BID
     Route: 048
     Dates: start: 20250526, end: 20250703
  2. NUBEQA [Suspect]
     Active Substance: DAROLUTAMIDE
     Indication: Hormone-refractory prostate cancer
     Dates: start: 2025

REACTIONS (12)
  - Full blood count abnormal [Unknown]
  - Confusional state [Unknown]
  - Mixed dementia [Not Recovered/Not Resolved]
  - Blood urea abnormal [Unknown]
  - Blood electrolytes abnormal [Unknown]
  - Hypophagia [Unknown]
  - Fluid intake reduced [Unknown]
  - Constipation [Unknown]
  - Product dose omission issue [None]
  - Full blood count abnormal [Unknown]
  - Lipids abnormal [Unknown]
  - Glycosylated haemoglobin abnormal [Unknown]

NARRATIVE: CASE EVENT DATE: 20250101
